FAERS Safety Report 12563207 (Version 2)
Quarter: 2016Q3

REPORT INFORMATION
  Report Type: Spontaneous
  Country: US (occurrence: US)
  Receive Date: 20160715
  Receipt Date: 20160815
  Transmission Date: 20161109
  Serious: No
  Sender: FDA-Public Use
  Company Number: US-PFIZER INC-2016343995

PATIENT
  Age: 81 Year
  Sex: Female

DRUGS (8)
  1. LYRICA [Suspect]
     Active Substance: PREGABALIN
     Dosage: 50 MG, 2X/DAY
     Dates: start: 20160501
  2. TYLENOL [Suspect]
     Active Substance: ACETAMINOPHEN
     Indication: PAIN
     Dosage: UNK, 2X/DAY (EVERY 12 HOURS)
  3. TYLENOL [Suspect]
     Active Substance: ACETAMINOPHEN
     Dosage: 500 MG, AS NEEDED
     Dates: start: 201604
  4. ESOMEPRAZOLE [Concomitant]
     Active Substance: ESOMEPRAZOLE
     Dosage: 40 MG, DAILY (40 MG - ONE PER DAY)
  5. LYRICA [Suspect]
     Active Substance: PREGABALIN
     Indication: NERVE COMPRESSION
     Dosage: 50 MG, 2X/DAY
     Dates: start: 20160501
  6. ALEVE [Suspect]
     Active Substance: NAPROXEN SODIUM
     Indication: PAIN
     Dosage: 220 MG, 2X/DAY (EVERY 12 HOURS)
     Dates: start: 201605
  7. ALEVE [Suspect]
     Active Substance: NAPROXEN SODIUM
     Indication: SPINAL PAIN
  8. ALEVE [Suspect]
     Active Substance: NAPROXEN SODIUM
     Indication: PAIN IN EXTREMITY

REACTIONS (2)
  - Visual impairment [Not Recovered/Not Resolved]
  - Proctalgia [Not Recovered/Not Resolved]

NARRATIVE: CASE EVENT DATE: 20160501
